FAERS Safety Report 25063639 (Version 1)
Quarter: 2025Q1

REPORT INFORMATION
  Report Type: Spontaneous
  Country: US (occurrence: None)
  Receive Date: 20250310
  Receipt Date: 20250310
  Transmission Date: 20250409
  Serious: Yes (Hospitalization)
  Sender: FDA-CTU
  Company Number: None

PATIENT
  Age: 84 Year
  Sex: Male

DRUGS (1)
  1. ELIQUIS [Suspect]
     Active Substance: APIXABAN
     Indication: Atrial fibrillation
     Dosage: 1.00 UNK- UNKNOWN  TWICE A DAY ORAL?
     Route: 048
     Dates: start: 20191127, end: 20230307

REACTIONS (4)
  - Haematuria [None]
  - Urinary retention [None]
  - Abdominal discomfort [None]
  - Thrombosis [None]

NARRATIVE: CASE EVENT DATE: 20230307
